FAERS Safety Report 15201902 (Version 2)
Quarter: 2018Q3

REPORT INFORMATION
  Report Type: Spontaneous
  Country: CH (occurrence: CH)
  Receive Date: 20180726
  Receipt Date: 20180726
  Transmission Date: 20181010
  Serious: Yes (Hospitalization)
  Sender: FDA-Public Use
  Company Number: PHHY2018CH049887

PATIENT
  Age: 56 Year
  Sex: Male
  Weight: 81.7 kg

DRUGS (3)
  1. TEGRETOL [Interacting]
     Active Substance: CARBAMAZEPINE
     Indication: PRODUCT USED FOR UNKNOWN INDICATION
     Dosage: 600 MG, QD (1/2 TABLET IN THE MORNING AND 1 IN THE EVENING)
     Route: 048
     Dates: start: 201805
  2. LAMICTAL [Interacting]
     Active Substance: LAMOTRIGINE
     Indication: PRODUCT USED FOR UNKNOWN INDICATION
     Dosage: 250 MG, QD (2 + 1/2 TABLETS IN THE MORNING AND 2 + 1/2 TABLETS IN THE AFTERNOON)
     Route: 048
     Dates: start: 201805
  3. LEVETIRACETAM. [Suspect]
     Active Substance: LEVETIRACETAM
     Indication: PRODUCT USED FOR UNKNOWN INDICATION
     Dosage: 1000 MG, QD (THE DRUG WAS ADDED TO ANTIEPILEPTIC THERAPY FOLLOWING THE LAST ADMISSION IN MAY)
     Route: 048
     Dates: start: 201805

REACTIONS (4)
  - Drug interaction [Recovered/Resolved]
  - Asthenia [Recovered/Resolved]
  - Fall [Recovered/Resolved]
  - Muscular weakness [Recovered/Resolved]

NARRATIVE: CASE EVENT DATE: 201805
